FAERS Safety Report 21370380 (Version 1)
Quarter: 2022Q3

REPORT INFORMATION
  Report Type: Spontaneous
  Country: NO (occurrence: NO)
  Receive Date: 20220923
  Receipt Date: 20220923
  Transmission Date: 20221027
  Serious: Yes (Life-Threatening, Hospitalization)
  Sender: FDA-Public Use
  Company Number: NO-NALPROPION PHARMACEUTICALS INC.-NO-2022CUR023014

PATIENT
  Age: 45 Year
  Sex: Female

DRUGS (5)
  1. BUPROPION HYDROCHLORIDE\NALTREXONE HYDROCHLORIDE [Suspect]
     Active Substance: BUPROPION HYDROCHLORIDE\NALTREXONE HYDROCHLORIDE
     Indication: Overweight
     Dosage: STRENGTH 8/90MG, 1 TABLET DAILY
     Route: 065
     Dates: start: 20220814, end: 20220814
  2. NOBLIGAN RETARD [Concomitant]
     Indication: Product used for unknown indication
     Dosage: 100 MG, Q12H
  3. VITAMINS NOS [Concomitant]
     Active Substance: VITAMINS
     Indication: Product used for unknown indication
     Dosage: UNK
  4. MAGNESIUM [Concomitant]
     Active Substance: MAGNESIUM
     Indication: Product used for unknown indication
     Dosage: UNK
  5. CYANOCOBALAMIN\FOLIC ACID\PYRIDOXINE HYDROCHLORIDE [Concomitant]
     Active Substance: CYANOCOBALAMIN\FOLIC ACID\PYRIDOXINE HYDROCHLORIDE
     Indication: Product used for unknown indication
     Dosage: UNK (PRODUCT WITH THREE DIFFERENT B-VITAMINES)

REACTIONS (11)
  - Hypersensitivity [Recovered/Resolved]
  - Cold sweat [Unknown]
  - Aphasia [Unknown]
  - Respiratory rate increased [Unknown]
  - Pharyngeal swelling [Unknown]
  - Paraesthesia [Unknown]
  - Vomiting [Unknown]
  - Restlessness [Unknown]
  - Nausea [Unknown]
  - Diarrhoea [Unknown]
  - Anxiety [Unknown]

NARRATIVE: CASE EVENT DATE: 20220814
